FAERS Safety Report 21525651 (Version 1)
Quarter: 2022Q4

REPORT INFORMATION
  Report Type: Spontaneous
  Country: US (occurrence: US)
  Receive Date: 20221031
  Receipt Date: 20221031
  Transmission Date: 20230112
  Serious: No
  Sender: FDA-Public Use
  Company Number: US-STRIDES ARCOLAB LIMITED-2022SP011494

PATIENT
  Sex: Male

DRUGS (1)
  1. POTASSIUM CITRATE [Suspect]
     Active Substance: POTASSIUM CITRATE
     Indication: Product used for unknown indication
     Dosage: UNK,TABLET,(100 TABLETS BOTTLE),THE PATIENT WAS CONSUMING MORE THAN ONE TABLET IN A DAY
     Route: 065

REACTIONS (1)
  - Poor quality product administered [Unknown]
